FAERS Safety Report 6930557-8 (Version None)
Quarter: 2010Q3

REPORT INFORMATION
  Report Type: 
  Country: None (occurrence: None)
  Receive Date: 20100818
  Receipt Date: 20100816
  Transmission Date: 20110219
  Serious: Yes (Other)
  Sender: FDA-Public Use
  Company Number: B0662730A

PATIENT
  Age: 41 Year
  Sex: Female

DRUGS (3)
  1. PAROXETINE HCL [Suspect]
     Indication: DEPRESSION
     Route: 048
     Dates: start: 20010101, end: 20060901
  2. PAROXETINE HCL [Suspect]
     Indication: PRODUCT USED FOR UNKNOWN INDICATION
  3. TRAMADOL [Suspect]
     Indication: PRODUCT USED FOR UNKNOWN INDICATION
     Route: 065

REACTIONS (11)
  - ANGER [None]
  - DEPRESSIVE SYMPTOM [None]
  - DRUG ABUSE [None]
  - MANIA [None]
  - MOOD ALTERED [None]
  - NERVOUS SYSTEM DISORDER [None]
  - OVERDOSE [None]
  - PREMATURE MENOPAUSE [None]
  - PSYCHOMOTOR HYPERACTIVITY [None]
  - TENSION [None]
  - VICTIM OF ABUSE [None]
